FAERS Safety Report 15820574 (Version 1)
Quarter: 2019Q1

REPORT INFORMATION
  Report Type: Spontaneous
  Country: US (occurrence: US)
  Receive Date: 20190111
  Receipt Date: 20190111
  Transmission Date: 20190417
  Serious: No
  Sender: FDA-Public Use
  Company Number: None

PATIENT
  Age: 53 Year
  Sex: Female

DRUGS (2)
  1. CVS EXTRA STRENGTH COLD AND HOT MEDICATED [Suspect]
     Active Substance: MENTHOL
     Indication: MUSCULOSKELETAL PAIN
     Dosage: ?          OTHER STRENGTH:SIZE;QUANTITY:5 PATCH(ES);?
     Route: 062
     Dates: start: 20190109, end: 20190111
  2. CVS EXTRA STRENGTH COLD AND HOT MEDICATED [Suspect]
     Active Substance: MENTHOL
     Indication: MYALGIA
     Dosage: ?          OTHER STRENGTH:SIZE;QUANTITY:5 PATCH(ES);?
     Route: 062
     Dates: start: 20190109, end: 20190111

REACTIONS (2)
  - Burning sensation [None]
  - Erythema [None]

NARRATIVE: CASE EVENT DATE: 20190111
